FAERS Safety Report 14356823 (Version 3)
Quarter: 2019Q1

REPORT INFORMATION
  Report Type: Spontaneous
  Country: ES (occurrence: ES)
  Receive Date: 20180105
  Receipt Date: 20190110
  Transmission Date: 20190417
  Serious: Yes (Death)
  Sender: FDA-Public Use
  Company Number: ES-MYLANLABS-2018M1000856

PATIENT
  Sex: Female

DRUGS (2)
  1. PACLITAXEL. [Suspect]
     Active Substance: PACLITAXEL
     Indication: CERVIX CANCER METASTATIC
     Dosage: 175 MILLIGRAM/SQ. METER CYCLIC (INFUSED OVER 3 H ON DAY 1 EVERY 3 WEEKS AND OVER 6-8 CYCLES)
     Route: 050
  2. BEVACIZUMAB. [Suspect]
     Active Substance: BEVACIZUMAB
     Indication: CERVIX CANCER METASTATIC
     Dosage: 15 MILLIGRAM/KILOGRAM, 3XW
     Route: 065

REACTIONS (2)
  - Sepsis [Fatal]
  - Fistula [Fatal]
